FAERS Safety Report 12086993 (Version 2)
Quarter: 2016Q1

REPORT INFORMATION
  Report Type: Spontaneous
  Country: US (occurrence: US)
  Receive Date: 20160217
  Receipt Date: 20160217
  Transmission Date: 20160526
  Serious: No
  Sender: FDA-Public Use
  Company Number: US-ALLERGAN-1507127US

PATIENT
  Sex: Female
  Weight: 56.24 kg

DRUGS (3)
  1. NORTRIPTYLINE [Concomitant]
     Active Substance: NORTRIPTYLINE
     Indication: MYALGIA
     Dosage: 10 MG, BID
  2. RESTASIS [Suspect]
     Active Substance: CYCLOSPORINE
     Indication: DRY EYE
     Dosage: UNK
     Dates: start: 2005
  3. RESTASIS [Suspect]
     Active Substance: CYCLOSPORINE
     Dosage: 1 GTT, BID
     Route: 047
     Dates: start: 201504

REACTIONS (4)
  - Sinusitis [Unknown]
  - Foreign body sensation in eyes [Recovered/Resolved]
  - Eye disorder [Unknown]
  - Infection [Unknown]

NARRATIVE: CASE EVENT DATE: 2005
